FAERS Safety Report 18140705 (Version 1)
Quarter: 2020Q3

REPORT INFORMATION
  Report Type: Spontaneous
  Country: US (occurrence: US)
  Receive Date: 20200812
  Receipt Date: 20200812
  Transmission Date: 20201103
  Serious: Yes (Hospitalization)
  Sender: FDA-Public Use
  Company Number: None

PATIENT
  Age: 86 Year
  Sex: Male
  Weight: 84 kg

DRUGS (2)
  1. COLCHICINE (COLCHICINE 0.6MG TAB) [Suspect]
     Active Substance: COLCHICINE
  2. INDOMETHACIN (INDOMETHACIN 50MG CAP) [Suspect]
     Active Substance: INDOMETHACIN
     Indication: PAIN
     Route: 048
     Dates: start: 20100319, end: 20200504

REACTIONS (2)
  - Therapy cessation [None]
  - Gastric haemorrhage [None]

NARRATIVE: CASE EVENT DATE: 20200504
